FAERS Safety Report 6152342-X (Version None)
Quarter: 2009Q2

REPORT INFORMATION
  Report Type: 
  Country: None (occurrence: None)
  Receive Date: 20090409
  Receipt Date: 20090324
  Transmission Date: 20091009
  Serious: Yes (Other)
  Sender: FDA-Public Use
  Company Number: 8044292

PATIENT
  Sex: Female
  Weight: 72.7 kg

DRUGS (6)
  1. KEPPRA [Suspect]
     Indication: EPILEPSY
     Dosage: 500 MG 3/D PO
     Route: 048
     Dates: start: 20040101
  2. CRESTOR [Concomitant]
  3. METFORMIN HCL [Concomitant]
  4. NOVOLOG MIX 70/30 [Concomitant]
  5. VITAMIN D [Concomitant]
  6. DIOVAN [Concomitant]

REACTIONS (5)
  - ANKLE OPERATION [None]
  - CONVULSION [None]
  - HIP ARTHROPLASTY [None]
  - TENDON RUPTURE [None]
  - VITAMIN D DECREASED [None]
